FAERS Safety Report 24171527 (Version 6)
Quarter: 2025Q3

REPORT INFORMATION
  Report Type: Spontaneous
  Country: US (occurrence: US)
  Receive Date: 20240805
  Receipt Date: 20250821
  Transmission Date: 20251020
  Serious: Yes (Other)
  Sender: CSL BEHRING
  Company Number: US-BEH-2024176675

PATIENT
  Age: 18 Year
  Sex: Male

DRUGS (13)
  1. IDELVION [Suspect]
     Active Substance: COAGULATION FACTOR IX RECOMBINANT HUMAN
     Indication: Factor IX deficiency
     Dosage: 1000 IU, EVERY 7 DAYS
     Route: 042
     Dates: start: 201410
  2. IDELVION [Suspect]
     Active Substance: COAGULATION FACTOR IX RECOMBINANT HUMAN
     Indication: Factor IX deficiency
     Dosage: 1000 IU, EVERY 7 DAYS
     Route: 042
     Dates: start: 201410
  3. IDELVION [Suspect]
     Active Substance: COAGULATION FACTOR IX RECOMBINANT HUMAN
     Dosage: 2000 IU, EVERY 7 DAYS
     Route: 042
     Dates: start: 201410
  4. IDELVION [Suspect]
     Active Substance: COAGULATION FACTOR IX RECOMBINANT HUMAN
     Dosage: 2000 IU, EVERY 7 DAYS
     Route: 042
     Dates: start: 201410
  5. IDELVION [Suspect]
     Active Substance: COAGULATION FACTOR IX RECOMBINANT HUMAN
     Dosage: 600 IU, EVERY 7 DAYS STRENGHT 500
     Route: 042
     Dates: start: 201410
  6. IDELVION [Suspect]
     Active Substance: COAGULATION FACTOR IX RECOMBINANT HUMAN
     Dosage: 600 IU, EVERY 7 DAYS STRENGHT 500
     Route: 042
     Dates: start: 201410
  7. IDELVION [Suspect]
     Active Substance: COAGULATION FACTOR IX RECOMBINANT HUMAN
     Route: 042
  8. IDELVION [Suspect]
     Active Substance: COAGULATION FACTOR IX RECOMBINANT HUMAN
     Route: 042
  9. IDELVION [Suspect]
     Active Substance: COAGULATION FACTOR IX RECOMBINANT HUMAN
     Route: 042
  10. IDELVION [Suspect]
     Active Substance: COAGULATION FACTOR IX RECOMBINANT HUMAN
     Route: 042
  11. IDELVION [Suspect]
     Active Substance: COAGULATION FACTOR IX RECOMBINANT HUMAN
     Indication: Factor IX deficiency
     Route: 042
     Dates: start: 201410
  12. IDELVION [Suspect]
     Active Substance: COAGULATION FACTOR IX RECOMBINANT HUMAN
     Indication: Factor IX deficiency
     Route: 042
     Dates: start: 201410
  13. AMINOCAPROIC ACID [Concomitant]
     Active Substance: AMINOCAPROIC ACID

REACTIONS (8)
  - Haemorrhage [Unknown]
  - Haemorrhage [Unknown]
  - Haemorrhage [Unknown]
  - Haemorrhage [Unknown]
  - Haemarthrosis [Unknown]
  - Haemorrhage [Recovered/Resolved]
  - Limb injury [Unknown]
  - Hand fracture [Unknown]

NARRATIVE: CASE EVENT DATE: 20240722
